FAERS Safety Report 23178186 (Version 1)
Quarter: 2023Q4

REPORT INFORMATION
  Report Type: Spontaneous
  Country: US (occurrence: None)
  Receive Date: 20231113
  Receipt Date: 20231113
  Transmission Date: 20240110
  Serious: Yes (Hospitalization)
  Sender: FDA-Public Use
  Company Number: None

PATIENT
  Age: 62 Year
  Sex: Male

DRUGS (1)
  1. RIBAVIRIN [Suspect]
     Active Substance: RIBAVIRIN
     Dosage: OTHER QUANTITY : 200MG / 400MG;?FREQUENCY : TWICE A DAY;?

REACTIONS (3)
  - Vomiting [None]
  - Diarrhoea [None]
  - Blood sodium decreased [None]

NARRATIVE: CASE EVENT DATE: 20231031
